FAERS Safety Report 10580317 (Version 3)
Quarter: 2015Q1

REPORT INFORMATION
  Report Type: Spontaneous
  Country: JP (occurrence: JP)
  Receive Date: 20141112
  Receipt Date: 20150101
  Transmission Date: 20150720
  Serious: Yes (Other)
  Sender: FDA-Public Use
  Company Number: US-ASTRAZENECA-2014SE63461

PATIENT
  Age: 20150 Day
  Sex: Male
  Weight: 78 kg

DRUGS (8)
  1. METGLUCO [Concomitant]
     Active Substance: METFORMIN HYDROCHLORIDE
  2. MICAMLO [Suspect]
     Active Substance: AMLODIPINE BESYLATE\TELMISARTAN
     Route: 048
     Dates: end: 20140820
  3. MICARDIS [Concomitant]
     Active Substance: TELMISARTAN
     Dosage: DOSE UNKNOWN
     Route: 065
  4. VILDAGLIPTIN [Suspect]
     Active Substance: VILDAGLIPTIN
     Route: 048
  5. NATRIX [Concomitant]
     Active Substance: INDAPAMIDE
  6. FORXIGA [Suspect]
     Active Substance: DAPAGLIFLOZIN
     Indication: DIABETES MELLITUS
     Route: 048
     Dates: end: 20140814
  7. GLIMEPIRIDE. [Concomitant]
     Active Substance: GLIMEPIRIDE
  8. NEXIUM [Suspect]
     Active Substance: ESOMEPRAZOLE MAGNESIUM
     Route: 048
     Dates: end: 20140820

REACTIONS (1)
  - Interstitial lung disease [Recovering/Resolving]

NARRATIVE: CASE EVENT DATE: 20140710
